FAERS Safety Report 5328647-9 (Version None)
Quarter: 2007Q2

REPORT INFORMATION
  Report Type: 
  Country: None (occurrence: None)
  Receive Date: 20070514
  Receipt Date: 20070427
  Transmission Date: 20071010
  Serious: Yes (Other)
  Sender: FDA-Public Use
  Company Number: DSA_29874_2007

PATIENT
  Sex: Male

DRUGS (3)
  1. DILTIAZEM [Suspect]
     Dosage: ORAL
     Route: 048
     Dates: start: 20000101
  2. SIMVASTATIN [Concomitant]
  3. PANTOPRAZOLE SODIUM [Concomitant]

REACTIONS (2)
  - ERECTILE DYSFUNCTION [None]
  - NEOPLASM [None]
